FAERS Safety Report 7815986 (Version 5)
Quarter: 2014Q1

REPORT INFORMATION
  Report Type: Spontaneous
  Country: US (occurrence: US)
  Receive Date: 20110216
  Receipt Date: 20140311
  Transmission Date: 20141002
  Serious: Yes (Death, Hospitalization)
  Sender: FDA-Public Use
  Company Number: US-B.I. PHARMACEUTICALS,INC./RIDGEFIELD-2011-BP-02814BP

PATIENT
  Age: 82 Year
  Sex: Female
  Weight: 74.84 kg

DRUGS (11)
  1. PRADAXA [Suspect]
     Indication: ATRIAL FIBRILLATION
     Dosage: 300 MG
     Route: 065
     Dates: start: 20101222, end: 20110911
  2. LIPITOR [Concomitant]
     Dosage: 10 MG
     Route: 048
  3. LOPRESSOR [Concomitant]
     Dosage: 50 MG
     Route: 048
  4. CARDIZEM CD [Concomitant]
     Dosage: 360 MG
     Route: 048
  5. LEVOTHYROXINE [Concomitant]
     Dosage: 100 MCG
     Route: 048
  6. VESICARE [Concomitant]
     Dosage: 5 MG
     Route: 048
  7. SILENDAC [Concomitant]
     Dosage: 200 MG
     Route: 048
  8. GABAPENTIN [Concomitant]
     Dosage: 900 MG
     Route: 048
  9. PREDNISONE [Concomitant]
     Route: 048
  10. REMIPRIL [Concomitant]
     Dosage: 5 MG
     Route: 048
  11. K-DUR [Concomitant]
     Dosage: 30 MEQ
     Route: 048

REACTIONS (9)
  - Gastrointestinal haemorrhage [Fatal]
  - Septic shock [Fatal]
  - Shock haemorrhagic [Fatal]
  - Coagulopathy [Fatal]
  - Intestinal ischaemia [Fatal]
  - Disseminated intravascular coagulation [Fatal]
  - Coagulopathy [Unknown]
  - Respiratory failure [Unknown]
  - Renal failure acute [Unknown]
